FAERS Safety Report 7539838-0 (Version None)
Quarter: 2011Q2

REPORT INFORMATION
  Report Type: 
  Country: None (occurrence: None)
  Receive Date: 20110610
  Receipt Date: 20110607
  Transmission Date: 20111010
  Serious: Yes (Hospitalization, Other)
  Sender: FDA-Public Use
  Company Number: SE-MEDIMMUNE-MEDI-0013171

PATIENT
  Sex: Male

DRUGS (10)
  1. IBUPROFEN [Concomitant]
     Route: 048
  2. PHYTONADIONE [Concomitant]
     Route: 048
     Dates: start: 20110216
  3. ALBUTEROL [Concomitant]
  4. EPINEPHRINE [Concomitant]
  5. ERGOCALCIFEROL [Concomitant]
  6. SEMPER STOMACH DROPS [Concomitant]
  7. URSODIOL [Concomitant]
  8. SYNAGIS [Suspect]
     Dates: start: 20110216, end: 20110216
  9. SYNAGIS [Suspect]
  10. BUDESONIDE [Concomitant]

REACTIONS (7)
  - RESPIRATORY TRACT INFECTION BACTERIAL [None]
  - OXYGEN SATURATION DECREASED [None]
  - C-REACTIVE PROTEIN INCREASED [None]
  - INGUINAL HERNIA [None]
  - RESPIRATORY SYNCYTIAL VIRUS INFECTION [None]
  - RESPIRATORY DISORDER [None]
  - GENERAL PHYSICAL HEALTH DETERIORATION [None]
